FAERS Safety Report 19167528 (Version 1)
Quarter: 2021Q2

REPORT INFORMATION
  Report Type: Spontaneous
  Country: US (occurrence: US)
  Receive Date: 20210421
  Receipt Date: 20210421
  Transmission Date: 20210717
  Serious: No
  Sender: FDA-Public Use
  Company Number: None

PATIENT
  Age: 92 Year
  Sex: Female
  Weight: 77.85 kg

DRUGS (1)
  1. OLOPATADINE 1% OPHTHALMIC DROPS [Suspect]
     Active Substance: OLOPATADINE
     Indication: SEASONAL ALLERGY
     Dosage: ?          QUANTITY:1 DROP(S);?
     Route: 047

REACTIONS (2)
  - Insomnia [None]
  - Tremor [None]

NARRATIVE: CASE EVENT DATE: 20210420
